FAERS Safety Report 9335981 (Version 3)
Quarter: 2013Q4

REPORT INFORMATION
  Report Type: Spontaneous
  Country: BR (occurrence: BR)
  Receive Date: 20130607
  Receipt Date: 20131009
  Transmission Date: 20140711
  Serious: Yes (Other)
  Sender: FDA-Public Use
  Company Number: BR-AMGEN-BRASP2012072468

PATIENT
  Age: 54 Year
  Sex: Female
  Weight: 58 kg

DRUGS (13)
  1. ENBREL [Suspect]
     Indication: RHEUMATOID ARTHRITIS
     Dosage: 50 MG, ONCE WEEKLY
     Route: 058
     Dates: start: 201207
  2. ENBREL [Suspect]
     Dosage: UNK
     Route: 065
  3. ENBREL [Suspect]
     Dosage: UNK
     Route: 065
  4. ENBREL [Suspect]
     Dosage: UNK
     Route: 065
  5. PURAN T4 [Concomitant]
     Indication: THYROID DISORDER
     Dosage: 125MG ONCE A DAY, AND ON THE OTHER DAY, TAKEN 150MG (ALTERNATE DAYS)
     Dates: start: 1996
  6. PURAN T4 [Concomitant]
     Indication: HYPERTHYROIDISM
  7. PURAN T4 [Concomitant]
     Indication: HYPOTHYROIDISM
  8. REUQUINOL [Concomitant]
     Indication: RHEUMATOID ARTHRITIS
     Dosage: 400 MG, 1X/DAY
     Route: 048
  9. DEFLAZACORT [Concomitant]
     Indication: RHEUMATOID ARTHRITIS
     Dosage: 18 MG, 1X/DAY
  10. DEFLAZACORT [Concomitant]
     Dosage: 6 MG, 1X/DAY
  11. NAPROXEN [Concomitant]
     Indication: RHEUMATOID ARTHRITIS
     Dosage: 500 MG, QD
     Route: 048
  12. ARAVA [Concomitant]
     Indication: RHEUMATOID ARTHRITIS
     Dosage: 20 MG, QD
     Route: 048
  13. HYDROXYCHLOROQUINE SULFATE [Concomitant]
     Indication: RHEUMATOID ARTHRITIS
     Dosage: 400 MG, QD
     Route: 065

REACTIONS (13)
  - Nervousness [Unknown]
  - Incorrect product storage [Unknown]
  - Headache [Recovered/Resolved]
  - Gastric disorder [Unknown]
  - Abdominal pain upper [Unknown]
  - Wrong technique in drug usage process [Unknown]
  - Diarrhoea [Unknown]
  - Dysentery [Recovered/Resolved]
  - Injection site pain [Unknown]
  - Injection site pruritus [Recovered/Resolved]
  - Injection site reaction [Recovered/Resolved]
  - Injection site erythema [Recovered/Resolved]
  - Injection site warmth [Recovered/Resolved]
